FAERS Safety Report 5640988-4 (Version None)
Quarter: 2008Q1

REPORT INFORMATION
  Report Type: 
  Country: None (occurrence: None)
  Receive Date: 20080227
  Receipt Date: 20080220
  Transmission Date: 20080703
  Serious: Yes (Hospitalization)
  Sender: FDA-Public Use
  Company Number: JP-ASTRAZENECA-2008AP01322

PATIENT
  Sex: Female
  Weight: 69 kg

DRUGS (4)
  1. OMEPRAL [Suspect]
     Indication: REFLUX OESOPHAGITIS
     Route: 048
     Dates: start: 20071210, end: 20080123
  2. BLOPRESS [Concomitant]
     Dosage: UNKNOWN DVIDED DOSE FREQUENCY
     Route: 048
  3. ADALAT [Concomitant]
     Dosage: UNKNOWN DVIDED DOSE FREQUENCY
     Route: 048
  4. LAXSORONE [Concomitant]
     Dosage: UNKNOWN DOSE
     Route: 048

REACTIONS (1)
  - LARGE INTESTINE CARCINOMA [None]
